FAERS Safety Report 5889905-2 (Version None)
Quarter: 2008Q3

REPORT INFORMATION
  Report Type: 
  Country: None (occurrence: None)
  Receive Date: 20080919
  Receipt Date: 20080914
  Transmission Date: 20090109
  Serious: Yes (Other)
  Sender: FDA-Public Use
  Company Number: PHHY2008CA15059

PATIENT
  Sex: Male

DRUGS (2)
  1. EXJADE [Suspect]
     Indication: IRON OVERLOAD
     Dosage: 1500 MG / DAILY
     Route: 048
     Dates: start: 20080501, end: 20080701
  2. PREDNISONE [Concomitant]
     Dosage: 5 MG/DAILY
     Route: 048
     Dates: start: 20070801

REACTIONS (5)
  - ASTHENIA [None]
  - DIZZINESS [None]
  - HAEMOGLOBIN DECREASED [None]
  - HYPERHIDROSIS [None]
  - SYNCOPE [None]
